FAERS Safety Report 8709508 (Version 2)
Quarter: 2012Q4

REPORT INFORMATION
  Report Type: 
  Country: US (occurrence: US)
  Receive Date: 20120806
  Receipt Date: 20120920
  Transmission Date: 20130627
  Serious: Yes (Other)
  Sender: FDA-Public Use
  Company Number: US-BAYER-2012-076753

PATIENT
  Age: 56 Year
  Sex: Female
  Weight: 95.24 kg

DRUGS (7)
  1. GADAVIST [Suspect]
     Indication: NUCLEAR MAGNETIC RESONANCE IMAGING
     Dosage: 10 ml, ONCE
     Route: 042
     Dates: start: 20120727, end: 20120727
  2. GADAVIST [Suspect]
     Indication: MUSCULAR WEAKNESS
  3. GADAVIST [Suspect]
     Indication: BACK PAIN
  4. CYMBALTA [Concomitant]
  5. GABAPENTIN [Concomitant]
  6. PERCOCET [Concomitant]
  7. TRAMADOL [Concomitant]

REACTIONS (10)
  - Headache [None]
  - Disorientation [None]
  - Dizziness [None]
  - Bone pain [None]
  - Swelling [None]
  - Cough [None]
  - Throat irritation [None]
  - Fatigue [None]
  - Asthenia [None]
  - Rash macular [None]
